FAERS Safety Report 9664129 (Version 1)
Quarter: 2013Q4

REPORT INFORMATION
  Report Type: Spontaneous
  Country: US (occurrence: None)
  Receive Date: 20131030
  Receipt Date: 20131030
  Transmission Date: 20140711
  Serious: No
  Sender: FDA-Public Use
  Company Number: None

PATIENT
  Sex: 0

DRUGS (1)
  1. BUPROPION XL [Suspect]
     Indication: DEPRESSION
     Route: 048

REACTIONS (2)
  - Hypersensitivity [None]
  - Product substitution issue [None]
